FAERS Safety Report 7398116-3 (Version None)
Quarter: 2011Q2

REPORT INFORMATION
  Report Type: 
  Country: None (occurrence: None)
  Receive Date: 20110406
  Receipt Date: 20110329
  Transmission Date: 20111010
  Serious: No
  Sender: FDA-Public Use
  Company Number: TR-CTI_01342_2011

PATIENT
  Sex: Male
  Weight: 70 kg

DRUGS (5)
  1. FOLBIOL (FOLIC ACID) [Concomitant]
     Dosage: DF
  2. SALAZOPYRIN (SULFASAZALIN) [Concomitant]
     Dosage: DF
  3. PREDNOL (METHYLPREDNISOLONE) [Concomitant]
     Dosage: DF
  4. GLUKOFEN (METFORMINE HCL) [Concomitant]
     Dosage: DF
  5. FACTIVE [Suspect]
     Indication: LOWER RESPIRATORY TRACT INFECTION
     Route: 048
     Dates: start: 20110211, end: 20110216

REACTIONS (4)
  - DYSPNOEA [None]
  - SPEECH DISORDER [None]
  - DIZZINESS [None]
  - URTICARIA [None]
